FAERS Safety Report 7604462-8 (Version None)
Quarter: 2011Q2

REPORT INFORMATION
  Report Type: 
  Country: None (occurrence: None)
  Receive Date: 20110623
  Receipt Date: 20110608
  Transmission Date: 20111010
  Serious: Yes (Hospitalization)
  Sender: FDA-Public Use
  Company Number: CIP11001398

PATIENT
  Age: 33 Year
  Sex: Female

DRUGS (1)
  1. NITROFURANTOIN MACROCRYSTALLINE [Suspect]
     Indication: URINARY TRACT INFECTION
     Dosage: 100 MG 1 TABLET ONLY, ORAL
     Route: 048

REACTIONS (2)
  - HAEMATOMA [None]
  - CUTANEOUS VASCULITIS [None]
